FAERS Safety Report 5045907-X (Version None)
Quarter: 2006Q3

REPORT INFORMATION
  Report Type: 
  Country: None (occurrence: None)
  Receive Date: 20060710
  Receipt Date: 20060629
  Transmission Date: 20061208
  Serious: Yes (Hospitalization)
  Sender: FDA-Public Use
  Company Number: DE-JNJFOC-20060700013

PATIENT
  Sex: Male

DRUGS (2)
  1. DURAGESIC-100 [Suspect]
     Indication: NEURALGIA
     Route: 062
  2. GABAPENTIN [Suspect]
     Indication: NEURALGIA
     Route: 065

REACTIONS (2)
  - DEHYDRATION [None]
  - DRUG WITHDRAWAL SYNDROME [None]
